FAERS Safety Report 13789209 (Version 1)
Quarter: 2017Q3

REPORT INFORMATION
  Report Type: Spontaneous
  Country: US (occurrence: US)
  Receive Date: 20170725
  Receipt Date: 20170725
  Transmission Date: 20171127
  Serious: No
  Sender: FDA-Public Use
  Company Number: US-UNITED THERAPEUTICS-UNT-2017-002107

PATIENT
  Sex: Male

DRUGS (3)
  1. ORENITRAM [Suspect]
     Active Substance: TREPROSTINIL
     Dosage: 5MG TID, 5.5 MG AT (HS) BED TIME (QID)
     Route: 048
     Dates: start: 201702
  2. ORENITRAM [Suspect]
     Active Substance: TREPROSTINIL
     Dosage: UNK
     Route: 048
     Dates: start: 20150717
  3. ORENITRAM [Suspect]
     Active Substance: TREPROSTINIL
     Indication: PULMONARY ARTERIAL HYPERTENSION
     Dosage: 5MG TID, 6MG AT (HS) BED TIME (QID)
     Route: 048
     Dates: start: 20161216, end: 20170205

REACTIONS (4)
  - Off label use [Unknown]
  - Vomiting [Unknown]
  - Nausea [Unknown]
  - Viral infection [Unknown]

NARRATIVE: CASE EVENT DATE: 201702
